FAERS Safety Report 14936295 (Version 1)
Quarter: 2018Q2

REPORT INFORMATION
  Report Type: Spontaneous
  Country: US (occurrence: US)
  Receive Date: 20180524
  Receipt Date: 20180524
  Transmission Date: 20180711
  Serious: No
  Sender: FDA-Public Use
  Company Number: US-BIOGEN-2014BI107190

PATIENT
  Sex: Female

DRUGS (1)
  1. AVONEX [Suspect]
     Active Substance: INTERFERON BETA-1A
     Indication: MULTIPLE SCLEROSIS
     Route: 030
     Dates: start: 19981201

REACTIONS (5)
  - Fall [Recovered/Resolved]
  - Weight increased [Not Recovered/Not Resolved]
  - Amnesia [Unknown]
  - Memory impairment [Unknown]
  - Balance disorder [Not Recovered/Not Resolved]
